FAERS Safety Report 9786127 (Version 1)
Quarter: 2013Q4

REPORT INFORMATION
  Report Type: Spontaneous
  Country: US (occurrence: None)
  Receive Date: 20131224
  Receipt Date: 20131224
  Transmission Date: 20140711
  Serious: Yes (Death, Hospitalization)
  Sender: FDA-Public Use
  Company Number: UTC-040394

PATIENT
  Age: 56 Year
  Sex: Female
  Weight: 79.1 kg

DRUGS (10)
  1. REMODULIN [Suspect]
     Indication: PULMONARY ARTERIAL HYPERTENSION
     Dosage: 86.4 UG/KG (0.06 UG/KG, 1 IN 1 MIN), SUBCUTANEOUS
     Route: 058
     Dates: start: 20090615
  2. ADCIRCA (TADALAFIL) [Concomitant]
  3. LASIX (FUROSEMIDE) [Concomitant]
  4. GLIPIZIDE [Concomitant]
  5. IRON [Concomitant]
  6. METFORMIN [Concomitant]
  7. PRILOSEC [Concomitant]
  8. PREDNISONE [Concomitant]
  9. LYRICA (PREGABALIN) [Concomitant]
  10. CELEXA (CITALOPRAM HYDROBROMIDE) [Concomitant]

REACTIONS (5)
  - Right ventricular failure [None]
  - Incorrect drug administration duration [None]
  - Product label confusion [None]
  - Device difficult to use [None]
  - Resuscitation [None]
